FAERS Safety Report 16731758 (Version 1)
Quarter: 2019Q3

REPORT INFORMATION
  Report Type: Spontaneous
  Country: ES (occurrence: ES)
  Receive Date: 20190822
  Receipt Date: 20190822
  Transmission Date: 20191005
  Serious: Yes (Other)
  Sender: FDA-Public Use
  Company Number: PHHY2019ES194762

PATIENT
  Age: 85 Year
  Sex: Female

DRUGS (2)
  1. PROMETAX [Suspect]
     Active Substance: RIVASTIGMINE
     Indication: DEMENTIA ALZHEIMER^S TYPE
     Dosage: UNK (UN PARCHE
     Route: 062
     Dates: start: 20190807
  2. PROMETAX [Suspect]
     Active Substance: RIVASTIGMINE
     Dosage: UNK (UN PARCHE
     Route: 062
     Dates: start: 20190808

REACTIONS (4)
  - Nausea [Recovered/Resolved]
  - Hypotension [Recovered/Resolved]
  - Hyperhidrosis [Recovered/Resolved]
  - Respiratory distress [Recovered/Resolved]

NARRATIVE: CASE EVENT DATE: 20190808
